FAERS Safety Report 6774167-4 (Version None)
Quarter: 2010Q2

REPORT INFORMATION
  Report Type: 
  Country: None (occurrence: None)
  Receive Date: 20100617
  Receipt Date: 20100608
  Transmission Date: 20101027
  Serious: Yes (Hospitalization, Disabling)
  Sender: FDA-Public Use
  Company Number: JP-JNJFOC-20100604968

PATIENT
  Sex: Male

DRUGS (15)
  1. CRAVIT [Suspect]
     Indication: PHARYNGITIS
     Route: 048
  2. CRAVIT [Suspect]
     Indication: BRONCHITIS
     Route: 048
  3. TRANSAMIN [Concomitant]
     Indication: PHARYNGITIS
     Route: 048
  4. TRANSAMIN [Concomitant]
     Indication: BRONCHITIS
     Route: 048
  5. MEDICON [Concomitant]
     Indication: PHARYNGITIS
     Route: 048
  6. MEDICON [Concomitant]
     Indication: BRONCHITIS
     Route: 048
  7. IBRUPROFEN [Concomitant]
     Indication: PHARYNGITIS
     Route: 048
  8. IBRUPROFEN [Concomitant]
     Indication: BRONCHITIS
     Route: 048
  9. CONIEL [Concomitant]
     Indication: HYPERTENSION
     Route: 048
  10. FLUVASTATIN SODIUM [Concomitant]
     Indication: HYPERCHOLESTEROLAEMIA
     Route: 048
  11. OMEPRAL [Concomitant]
     Indication: GASTRITIS EROSIVE
     Route: 048
  12. ALL OTHER THERAPEUTIC PRODUCTS [Concomitant]
     Indication: PHARYNGITIS
     Route: 048
  13. ALL OTHER THERAPEUTIC PRODUCTS [Concomitant]
     Indication: BRONCHITIS
     Route: 048
  14. ZITHROMAX [Concomitant]
     Indication: PHARYNGITIS
     Route: 048
  15. ZITHROMAX [Concomitant]
     Indication: BRONCHITIS
     Route: 048

REACTIONS (1)
  - ORGANISING PNEUMONIA [None]
